FAERS Safety Report 5149105-0 (Version None)
Quarter: 2006Q4

REPORT INFORMATION
  Report Type: 
  Country: None (occurrence: None)
  Receive Date: 20061113
  Receipt Date: 20060725
  Transmission Date: 20070319
  Serious: No
  Sender: FDA-Public Use
  Company Number: US-GLAXOSMITHKLINE-A0613489A

PATIENT
  Age: 57 Year
  Sex: Female

DRUGS (3)
  1. COREG [Suspect]
     Dosage: 6.25MG TWICE PER DAY
     Route: 048
     Dates: start: 20050401
  2. SYNTHROID [Concomitant]
  3. ASPIRIN [Concomitant]

REACTIONS (4)
  - DIPLOPIA [None]
  - MIGRAINE [None]
  - TIC [None]
  - VERTIGO [None]
